FAERS Safety Report 15937708 (Version 1)
Quarter: 2019Q1

REPORT INFORMATION
  Report Type: Spontaneous
  Country: US (occurrence: US)
  Receive Date: 20190208
  Receipt Date: 20190208
  Transmission Date: 20190417
  Serious: No
  Sender: FDA-Public Use
  Company Number: US-AEGERION PHARMACEUTICAL, INC-AEGR003862

PATIENT
  Sex: Male
  Weight: 34.14 kg

DRUGS (2)
  1. MYALEPT [Suspect]
     Active Substance: METRELEPTIN
     Indication: LIPODYSTROPHY ACQUIRED
     Dosage: 2.8 MG, 0.56 ML 56 UNITS
     Route: 058
  2. MYALEPT [Suspect]
     Active Substance: METRELEPTIN
     Dosage: 2.6 MG (.52 ML OR 52 UNITS), QD
     Route: 058

REACTIONS (1)
  - Blood triglycerides abnormal [Unknown]
